FAERS Safety Report 8538617-5 (Version None)
Quarter: 2012Q3

REPORT INFORMATION
  Report Type: 
  Country: None (occurrence: None)
  Receive Date: 20120718
  Receipt Date: 20120718
  Transmission Date: 20120928
  Serious: No
  Sender: FDA-Public Use
  Company Number: None

PATIENT
  Sex: Female
  Weight: 98.4306 kg

DRUGS (1)
  1. CYCLOSET [Suspect]
     Indication: DIABETES MELLITUS
     Dosage: 0.8 MG 1 PER DAY
     Dates: start: 20120629, end: 20120701

REACTIONS (3)
  - VOMITING [None]
  - NAUSEA [None]
  - SOMNOLENCE [None]
